FAERS Safety Report 10776147 (Version 1)
Quarter: 2015Q1

REPORT INFORMATION
  Report Type: Report from Study
  Country: US (occurrence: US)
  Receive Date: 20150209
  Receipt Date: 20150209
  Transmission Date: 20150721
  Serious: Yes (Death)
  Sender: FDA-Public Use
  Company Number: US-ASTELLAS-2015US003744

PATIENT
  Age: 68 Year
  Sex: Female

DRUGS (3)
  1. CARVEDILOL. [Suspect]
     Active Substance: CARVEDILOL
     Indication: PRODUCT USED FOR UNKNOWN INDICATION
     Route: 048
     Dates: start: 20090706
  2. LEXAPRO                            /01588501/ [Concomitant]
     Indication: PRODUCT USED FOR UNKNOWN INDICATION
     Route: 048
  3. ERLOTINIB [Suspect]
     Active Substance: ERLOTINIB
     Indication: LUNG NEOPLASM MALIGNANT
     Route: 048

REACTIONS (17)
  - Condition aggravated [Unknown]
  - Headache [Unknown]
  - Death [Fatal]
  - Visual acuity reduced [Unknown]
  - Paraesthesia [Unknown]
  - Night sweats [Unknown]
  - Productive cough [Unknown]
  - Chest pain [Unknown]
  - Asthenia [Unknown]
  - Syncope [Unknown]
  - Therapeutic response delayed [Unknown]
  - Decreased appetite [Unknown]
  - Weight decreased [Unknown]
  - Lymphadenopathy [Unknown]
  - Haematemesis [Unknown]
  - Dyspnoea [Unknown]
  - Depression [Unknown]

NARRATIVE: CASE EVENT DATE: 20090818
